FAERS Safety Report 10640347 (Version 1)
Quarter: 2014Q4

REPORT INFORMATION
  Report Type: Spontaneous
  Country: US (occurrence: None)
  Receive Date: 20141205
  Receipt Date: 20141205
  Transmission Date: 20150529
  Serious: Yes (Hospitalization)
  Sender: FDA-Public Use
  Company Number: None

PATIENT
  Age: 7 Year
  Sex: Female
  Weight: 17.6 kg

DRUGS (2)
  1. TEMOZOLOMIDE. [Suspect]
     Active Substance: TEMOZOLOMIDE
     Dates: end: 20141122
  2. CAMPTOSAR [Suspect]
     Active Substance: IRINOTECAN HYDROCHLORIDE
     Dates: end: 20141122

REACTIONS (12)
  - Hypotension [None]
  - Urine abnormality [None]
  - Red blood cells urine positive [None]
  - Cough [None]
  - White blood cells urine positive [None]
  - Decreased activity [None]
  - Haemoglobin decreased [None]
  - Diarrhoea [None]
  - Hypophagia [None]
  - Laboratory test interference [None]
  - Hypokalaemia [None]
  - Vomiting [None]

NARRATIVE: CASE EVENT DATE: 20141130
